FAERS Safety Report 10792468 (Version 2)
Quarter: 2015Q1

REPORT INFORMATION
  Report Type: Spontaneous
  Country: US (occurrence: US)
  Receive Date: 20150213
  Receipt Date: 20150316
  Transmission Date: 20150721
  Serious: Yes (Other)
  Sender: FDA-Public Use
  Company Number: US-AMGEN-USASP2015008748

PATIENT
  Age: 31 Year
  Sex: Male

DRUGS (1)
  1. ARANESP [Suspect]
     Active Substance: DARBEPOETIN ALFA
     Indication: HAEMOCHROMATOSIS
     Dosage: 0.4 ML, 200/0.4 ML
     Route: 058
     Dates: start: 20120507

REACTIONS (5)
  - Aplasia pure red cell [Unknown]
  - Therapeutic response decreased [Unknown]
  - Transfusion [Not Recovered/Not Resolved]
  - Reticulocytopenia [Not Recovered/Not Resolved]
  - Off label use [Unknown]

NARRATIVE: CASE EVENT DATE: 201412
